FAERS Safety Report 10086875 (Version 1)
Quarter: 2014Q2

REPORT INFORMATION
  Report Type: Report from Study
  Country: US (occurrence: US)
  Receive Date: 20140418
  Receipt Date: 20140418
  Transmission Date: 20141212
  Serious: Yes (Hospitalization, Other)
  Sender: FDA-Public Use
  Company Number: US-BRISTOL-MYERS SQUIBB COMPANY-20614673

PATIENT
  Age: 30 Year
  Sex: Male
  Weight: 98 kg

DRUGS (1)
  1. IPILIMUMAB [Suspect]
     Indication: MALIGNANT MELANOMA
     Dosage: IND.3 MG/KG IV OVER 90 MINS,Q3 WK.X 4 DOSES.MAINTAIN:Q 12WKS.TOTAL DOSE :303 MG,LAST DOSE ON 07MAR14
     Route: 042
     Dates: start: 20140124

REACTIONS (6)
  - Abdominal pain [Recovered/Resolved]
  - Diarrhoea [Recovered/Resolved]
  - Nausea [Recovered/Resolved]
  - Headache [Recovered/Resolved]
  - Pyrexia [Recovered/Resolved]
  - Sinusitis [Unknown]
